FAERS Safety Report 10850140 (Version 1)
Quarter: 2015Q1

REPORT INFORMATION
  Report Type: Spontaneous
  Country: US (occurrence: US)
  Receive Date: 20150221
  Receipt Date: 20150221
  Transmission Date: 20150721
  Serious: Yes (Death)
  Sender: FDA-Public Use
  Company Number: US-NOVEN-15US013551

PATIENT
  Age: 19 Year
  Sex: Male

DRUGS (1)
  1. 485 (METHYLPHENIDATE) [Suspect]
     Active Substance: METHYLPHENIDATE
     Indication: PRODUCT USED FOR UNKNOWN INDICATION
     Dosage: UNK
     Route: 048

REACTIONS (2)
  - Death [Fatal]
  - Adverse event [Fatal]
